FAERS Safety Report 23334811 (Version 3)
Quarter: 2024Q3

REPORT INFORMATION
  Report Type: Spontaneous
  Country: US (occurrence: US)
  Receive Date: 20231224
  Receipt Date: 20240917
  Transmission Date: 20241016
  Serious: No
  Sender: TRAVERE THERAPEUTICS
  Company Number: US-TRAVERE-2023TVT00827

PATIENT
  Age: 23 Year
  Sex: Male

DRUGS (8)
  1. FILSPARI [Suspect]
     Active Substance: SPARSENTAN
     Indication: Haematuria
     Route: 048
     Dates: start: 20230729
  2. FILSPARI [Suspect]
     Active Substance: SPARSENTAN
     Indication: Acute kidney injury
     Route: 048
     Dates: start: 202406
  3. FILSPARI [Suspect]
     Active Substance: SPARSENTAN
     Indication: Chronic kidney disease
  4. FILSPARI [Suspect]
     Active Substance: SPARSENTAN
     Indication: Ascites
  5. FILSPARI [Suspect]
     Active Substance: SPARSENTAN
     Indication: Proteinuria
  6. FARXIGA [Concomitant]
     Active Substance: DAPAGLIFLOZIN PROPANEDIOL
  7. BIOTIN [Concomitant]
     Active Substance: BIOTIN
  8. FISH OIL [Concomitant]
     Active Substance: FISH OIL

REACTIONS (3)
  - Product use in unapproved indication [Unknown]
  - Brain fog [Recovered/Resolved]
  - Inappropriate schedule of product administration [Unknown]

NARRATIVE: CASE EVENT DATE: 20230729
